FAERS Safety Report 25390858 (Version 2)
Quarter: 2025Q3

REPORT INFORMATION
  Report Type: Spontaneous
  Country: EU (occurrence: EU)
  Receive Date: 20250603
  Receipt Date: 20250828
  Transmission Date: 20251021
  Serious: Yes (Hospitalization)
  Sender: MYLAN
  Company Number: None

PATIENT
  Age: 59 Year
  Sex: Female
  Weight: 66 kg

DRUGS (5)
  1. ATORVASTATIN [Suspect]
     Active Substance: ATORVASTATIN
     Indication: Arteriosclerosis
     Dosage: 20 MILLIGRAM, QD (1X PER DAY)
     Dates: start: 20210708, end: 20241218
  2. ASPIRIN [Concomitant]
     Active Substance: ASPIRIN
  3. Nalgesin [Concomitant]
  4. ACETAMINOPHEN [Concomitant]
     Active Substance: ACETAMINOPHEN
  5. Canifug [Concomitant]
     Indication: Nail disorder

REACTIONS (5)
  - Myopathy [Recovering/Resolving]
  - Muscle injury [Recovering/Resolving]
  - Muscle strength abnormal [Recovering/Resolving]
  - Weight decreased [Recovered/Resolved]
  - Muscle spasms [Recovered/Resolved]

NARRATIVE: CASE EVENT DATE: 20240701
